FAERS Safety Report 11726964 (Version 6)
Quarter: 2016Q2

REPORT INFORMATION
  Report Type: Spontaneous
  Country: US (occurrence: US)
  Receive Date: 20151112
  Receipt Date: 20160614
  Transmission Date: 20160815
  Serious: No
  Sender: FDA-Public Use
  Company Number: US-VERTEX PHARMACEUTICALS-2015-005019

PATIENT
  Age: 17 Year
  Sex: Female
  Weight: 70 kg

DRUGS (11)
  1. ORKAMBI [Suspect]
     Active Substance: IVACAFTOR\LUMACAFTOR
     Indication: CYSTIC FIBROSIS
     Dosage: 2 DF (400MG-250MG), BID
     Route: 048
     Dates: start: 20151016
  2. ALBUTEROL. [Concomitant]
     Active Substance: ALBUTEROL
  3. ZOLOFT [Concomitant]
     Active Substance: SERTRALINE HYDROCHLORIDE
  4. VITAMIN D [Concomitant]
     Active Substance: CHOLECALCIFEROL
  5. SODIUM CHLORIDE. [Concomitant]
     Active Substance: SODIUM CHLORIDE
  6. PANCRELIPASE. [Concomitant]
     Active Substance: PANCRELIPASE
  7. AQUADEKS [Concomitant]
     Active Substance: MINERALS\VITAMINS
  8. PULMOZYME [Concomitant]
     Active Substance: DORNASE ALFA
  9. SERTRALINE [Interacting]
     Active Substance: SERTRALINE HYDROCHLORIDE
     Route: 065
  10. CONTRACEPTIVES [Interacting]
     Active Substance: UNSPECIFIED INGREDIENT
     Route: 065
  11. MULTIVITAMIN [Concomitant]
     Active Substance: VITAMINS

REACTIONS (7)
  - Mood swings [Not Recovered/Not Resolved]
  - Acne [Not Recovered/Not Resolved]
  - Menstrual disorder [Unknown]
  - Cough [Recovered/Resolved]
  - Diarrhoea [Recovered/Resolved]
  - Extra dose administered [Not Recovered/Not Resolved]
  - Drug interaction [Unknown]

NARRATIVE: CASE EVENT DATE: 201510
